FAERS Safety Report 8957383 (Version 2)
Quarter: 2013Q1

REPORT INFORMATION
  Report Type: Spontaneous
  Country: US (occurrence: US)
  Receive Date: 20121210
  Receipt Date: 20130131
  Transmission Date: 20140127
  Serious: Yes (Life-Threatening)
  Sender: FDA-Public Use
  Company Number: US-ASTELLAS-2012US011246

PATIENT
  Sex: Male

DRUGS (2)
  1. XTANDI [Suspect]
     Indication: PROSTATE CANCER
     Dosage: 160 MG, UID/QD
     Route: 048
     Dates: start: 20121008
  2. XTANDI [Suspect]
     Dosage: 160 MG, UID/QD
     Route: 048
     Dates: start: 20121008

REACTIONS (4)
  - Choking [Unknown]
  - Dysphagia [Unknown]
  - Treatment noncompliance [Unknown]
  - Product size issue [Unknown]
